FAERS Safety Report 10899177 (Version 1)
Quarter: 2015Q1

REPORT INFORMATION
  Report Type: Report from Study
  Country: CO (occurrence: CO)
  Receive Date: 20150309
  Receipt Date: 20150309
  Transmission Date: 20150721
  Serious: Yes (Hospitalization)
  Sender: FDA-Public Use
  Company Number: CO-BRISTOL-MYERS SQUIBB COMPANY-BMS-2014-007477

PATIENT
  Sex: Male

DRUGS (1)
  1. CETUXIMAB [Suspect]
     Active Substance: CETUXIMAB
     Indication: HEAD AND NECK CANCER
     Dosage: 750 MG, UNK
     Route: 042

REACTIONS (4)
  - Vomiting [Unknown]
  - Mucosal inflammation [Unknown]
  - Dysphagia [Unknown]
  - General physical health deterioration [Recovering/Resolving]
